FAERS Safety Report 8124144-6 (Version None)
Quarter: 2012Q1

REPORT INFORMATION
  Report Type: 
  Country: None (occurrence: None)
  Receive Date: 20120209
  Receipt Date: 20120130
  Transmission Date: 20120608
  Serious: Yes (Hospitalization)
  Sender: FDA-Public Use
  Company Number: JP-BAYER-2010-002509

PATIENT
  Age: 63 Year
  Sex: Male
  Weight: 53.968 kg

DRUGS (5)
  1. BASEN [Concomitant]
     Indication: DIABETES MELLITUS
     Dosage: DAILY DOSE 0.2 MG
     Route: 048
  2. URSO 250 [Concomitant]
     Indication: HEPATITIS
     Dosage: DAILY DOSE 600 MG
     Route: 048
  3. LANSOPRAZOLE [Concomitant]
     Indication: GASTROOESOPHAGEAL REFLUX DISEASE
     Dosage: DAILY DOSE 15 MG
     Route: 048
  4. LENDORMIN [Concomitant]
     Indication: INSOMNIA
     Dosage: DAILY DOSE 0.25 MG
     Route: 048
  5. NEXAVAR [Suspect]
     Indication: HEPATIC NEOPLASM MALIGNANT
     Dosage: DAILY DOSE 400 MG
     Route: 048
     Dates: start: 20100928, end: 20111015

REACTIONS (7)
  - PALMAR-PLANTAR ERYTHRODYSAESTHESIA SYNDROME [None]
  - ASPARTATE AMINOTRANSFERASE INCREASED [None]
  - BLOOD CHLORIDE INCREASED [None]
  - HYPERTENSION [None]
  - CEREBRAL INFARCTION [None]
  - VASCULAR FRAGILITY [None]
  - DIARRHOEA [None]
